FAERS Safety Report 22174461 (Version 1)
Quarter: 2023Q2

REPORT INFORMATION
  Report Type: Spontaneous
  Country: FR (occurrence: FR)
  Receive Date: 20230405
  Receipt Date: 20230405
  Transmission Date: 20230721
  Serious: Yes (Life-Threatening, Hospitalization, Other)
  Sender: FDA-Public Use
  Company Number: None

PATIENT
  Age: 46 Year
  Sex: Female
  Weight: 73 kg

DRUGS (21)
  1. PREDNISONE [Suspect]
     Active Substance: PREDNISONE
     Indication: Cryoglobulinaemia
     Dosage: FOR ONE WEEK, THEN GRADUAL DECREASE PLANNED UNTIL JUNE 2023?DAILY DOSE: 70 MILLIGRAM
     Route: 048
     Dates: start: 20221224
  2. PREDNISONE [Suspect]
     Active Substance: PREDNISONE
     Indication: Cryoglobulinaemia
     Route: 048
     Dates: start: 20221224
  3. VALGANCICLOVIR HYDROCHLORIDE [Suspect]
     Active Substance: VALGANCICLOVIR HYDROCHLORIDE
     Indication: Pneumonia cytomegaloviral
     Dosage: 450 MG 3 PER WEEK
     Route: 048
     Dates: start: 20230206, end: 20230217
  4. RITUXIMAB [Suspect]
     Active Substance: RITUXIMAB
     Indication: Cryoglobulinaemia
     Dosage: 4 COURSES
     Route: 042
     Dates: start: 20221213, end: 20221213
  5. RITUXIMAB [Suspect]
     Active Substance: RITUXIMAB
     Indication: Cryoglobulinaemia
     Dosage: 4 COURSES
     Route: 042
     Dates: start: 20221219, end: 20221219
  6. RITUXIMAB [Suspect]
     Active Substance: RITUXIMAB
     Indication: Cryoglobulinaemia
     Dosage: 4 COURSES
     Route: 042
     Dates: start: 20221226, end: 20221226
  7. RITUXIMAB [Suspect]
     Active Substance: RITUXIMAB
     Indication: Cryoglobulinaemia
     Dosage: 4 COURSES
     Route: 042
     Dates: start: 20230103, end: 20230103
  8. METHYLPREDNISOLONE [Suspect]
     Active Substance: METHYLPREDNISOLONE
     Dates: start: 20221203, end: 20221205
  9. SULFAMETHOXAZOLE\TRIMETHOPRIM [Suspect]
     Active Substance: SULFAMETHOXAZOLE\TRIMETHOPRIM
     Indication: Antibiotic prophylaxis
     Route: 048
     Dates: start: 20230206, end: 20230217
  10. PANTOPRAZOLE [Concomitant]
     Active Substance: PANTOPRAZOLE
  11. URAPIDIL [Concomitant]
     Active Substance: URAPIDIL
  12. ATENOLOL [Concomitant]
     Active Substance: ATENOLOL
  13. ARANESP [Concomitant]
     Active Substance: DARBEPOETIN ALFA
  14. CLONIDINE [Concomitant]
     Active Substance: CLONIDINE
  15. FUROSEMIDE [Concomitant]
     Active Substance: FUROSEMIDE
  16. FOLIC ACID [Concomitant]
     Active Substance: FOLIC ACID
  17. AMLODIPINE BESYLATE [Concomitant]
     Active Substance: AMLODIPINE BESYLATE
  18. RILMENIDINE [Concomitant]
     Active Substance: RILMENIDINE
  19. GABAPENTIN [Concomitant]
     Active Substance: GABAPENTIN
  20. REPAGLINIDE [Concomitant]
     Active Substance: REPAGLINIDE
  21. CHOLECALCIFEROL [Concomitant]
     Active Substance: CHOLECALCIFEROL

REACTIONS (7)
  - Pneumonia respiratory syncytial viral [Recovered/Resolved]
  - Septic shock [Recovering/Resolving]
  - Febrile bone marrow aplasia [Recovering/Resolving]
  - Multiple organ dysfunction syndrome [Not Recovered/Not Resolved]
  - Superinfection [Unknown]
  - Product use in unapproved indication [Recovered/Resolved]
  - Product use in unapproved indication [Not Recovered/Not Resolved]

NARRATIVE: CASE EVENT DATE: 20221224
